FAERS Safety Report 6379913-X (Version None)
Quarter: 2009Q3

REPORT INFORMATION
  Report Type: 
  Country: None (occurrence: None)
  Receive Date: 20090928
  Receipt Date: 20090917
  Transmission Date: 20100115
  Serious: Yes (Other)
  Sender: FDA-Public Use
  Company Number: PHHY2009BE40125

PATIENT
  Age: 83 Year
  Sex: Male

DRUGS (6)
  1. EXELON [Suspect]
     Indication: DEMENTIA ALZHEIMER'S TYPE
     Dosage: 4.5 MG 1 PATCH
     Route: 062
     Dates: start: 20090619, end: 20090710
  2. EXELON [Suspect]
     Dosage: HALF PATCH OF 4.5 MG
     Route: 062
     Dates: start: 20090710, end: 20090831
  3. SERLAIN [Concomitant]
     Dosage: HALF TABLET OF 50 MG
     Route: 048
     Dates: start: 20090619
  4. SERLAIN [Concomitant]
     Dosage: 1 TABLET OF 50 MG
     Route: 048
     Dates: start: 20090710
  5. SPIRIVA [Concomitant]
     Dosage: ONCE DAILY
  6. MISTABRON [Concomitant]

REACTIONS (12)
  - ABASIA [None]
  - BACK PAIN [None]
  - GAIT DISTURBANCE [None]
  - IMPAIRED DRIVING ABILITY [None]
  - MASKED FACIES [None]
  - MUSCLE RIGIDITY [None]
  - MUSCULOSKELETAL STIFFNESS [None]
  - OPISTHOTONUS [None]
  - PAIN IN EXTREMITY [None]
  - PARKINSON'S DISEASE [None]
  - POSTURE ABNORMAL [None]
  - TREMOR [None]
